FAERS Safety Report 6836371-6 (Version None)
Quarter: 2010Q3

REPORT INFORMATION
  Report Type: 
  Country: None (occurrence: None)
  Receive Date: 20100713
  Receipt Date: 20100630
  Transmission Date: 20110219
  Serious: Yes (Other)
  Sender: FDA-Public Use
  Company Number: ES-ELI_LILLY_AND_COMPANY-ES201007000266

PATIENT
  Sex: Male
  Weight: 38 kg

DRUGS (6)
  1. STRATTERA [Suspect]
     Indication: ATTENTION DEFICIT/HYPERACTIVITY DISORDER
     Dosage: 25 MG, DAILY (1/D)
     Route: 048
     Dates: start: 20091028
  2. STRATTERA [Suspect]
     Dosage: 40 MG, DAILY (1/D)
     Route: 048
  3. STRATTERA [Suspect]
     Dosage: 60 MG, DAILY (1/D)
     Route: 048
  4. PULMICORT [Concomitant]
     Indication: LUNG DISORDER
     Dosage: UNK, AS REQUIRED
     Route: 055
  5. TERBASMIN [Concomitant]
     Indication: LUNG DISORDER
     Dosage: UNK, AS REQUIRED
     Route: 055
  6. FML [Concomitant]
     Indication: EYE DISORDER
     Dosage: UNK, UNKNOWN
     Route: 047

REACTIONS (6)
  - DEPRESSED MOOD [None]
  - NERVOUSNESS [None]
  - ONYCHOPHAGIA [None]
  - OPPOSITIONAL DEFIANT DISORDER [None]
  - SUICIDAL IDEATION [None]
  - WEIGHT DECREASED [None]
